FAERS Safety Report 9257749 (Version 1)
Quarter: 2013Q2

REPORT INFORMATION
  Report Type: Spontaneous
  Country: JP (occurrence: JP)
  Receive Date: 20130426
  Receipt Date: 20130426
  Transmission Date: 20140414
  Serious: Yes (Death)
  Sender: FDA-Public Use
  Company Number: JP-ELI_LILLY_AND_COMPANY-JP201301009739

PATIENT
  Age: 86 Year
  Sex: Female

DRUGS (1)
  1. ADCIRCA [Suspect]
     Dosage: UNK
     Route: 048
     Dates: start: 20130101

REACTIONS (1)
  - Pneumonia [Fatal]
